FAERS Safety Report 5563648-7 (Version None)
Quarter: 2007Q4

REPORT INFORMATION
  Report Type: 
  Country: None (occurrence: None)
  Receive Date: 20071217
  Receipt Date: 20071207
  Transmission Date: 20080405
  Serious: Yes (Other)
  Sender: FDA-Public Use
  Company Number: GB-JNJFOC-20071202866

PATIENT
  Sex: Female
  Weight: 54 kg

DRUGS (8)
  1. REMICADE [Suspect]
     Indication: RHEUMATOID ARTHRITIS
     Route: 042
  2. PREDNISOLONE [Concomitant]
  3. CO-TENIDONE [Concomitant]
  4. FERROUS SULFATE TAB [Concomitant]
  5. FOSAMAX [Concomitant]
  6. ACETAMINOPHEN [Concomitant]
  7. RANITIDINE HCL [Concomitant]
  8. NAPROXEN [Concomitant]

REACTIONS (1)
  - SKIN CANCER [None]
